FAERS Safety Report 10197796 (Version 1)
Quarter: 2014Q2

REPORT INFORMATION
  Report Type: Spontaneous
  Country: US (occurrence: US)
  Receive Date: 20140527
  Receipt Date: 20140527
  Transmission Date: 20141212
  Serious: No
  Sender: FDA-Public Use
  Company Number: US-PFIZER INC-2014143118

PATIENT
  Age: 52 Year
  Sex: Female
  Weight: 72.56 kg

DRUGS (6)
  1. DETROL LA [Suspect]
     Indication: BLADDER DISORDER
     Dosage: 2 MG, DAILY
     Dates: end: 2014
  2. MORPHINE [Concomitant]
     Dosage: UNK
  3. OPANA [Concomitant]
     Dosage: UNK
  4. CELEXA [Concomitant]
     Dosage: 40 MG, DAILY
  5. LYRICA [Concomitant]
     Dosage: 225 MG, UNK
  6. ZONEGRAN [Concomitant]
     Dosage: 300 MG, DAILY

REACTIONS (1)
  - Drug ineffective [Unknown]
